FAERS Safety Report 18581014 (Version 1)
Quarter: 2020Q4

REPORT INFORMATION
  Report Type: Report from Study
  Country: DE (occurrence: DE)
  Receive Date: 20201204
  Receipt Date: 20201204
  Transmission Date: 20210114
  Serious: Yes (Hospitalization, Other)
  Sender: FDA-Public Use
  Company Number: NVSC2019DE062865

PATIENT
  Sex: Male

DRUGS (1)
  1. COSENTYX [Suspect]
     Active Substance: SECUKINUMAB
     Indication: AXIAL SPONDYLOARTHRITIS
     Dosage: 150 MG, UNKNOWN
     Route: 058
     Dates: start: 20181024, end: 20181205

REACTIONS (2)
  - Vasculitis [Unknown]
  - Borrelia infection [Unknown]

NARRATIVE: CASE EVENT DATE: 20181205
